FAERS Safety Report 9109220 (Version 1)
Quarter: 2013Q1

REPORT INFORMATION
  Report Type: Report from Study
  Country: US (occurrence: US)
  Receive Date: 20130222
  Receipt Date: 20130222
  Transmission Date: 20140127
  Serious: Yes (Other)
  Sender: FDA-Public Use
  Company Number: US-PFIZER INC-2013060711

PATIENT
  Age: 9 Year
  Sex: Male

DRUGS (49)
  1. CYCLOPHOSPHAMIDE [Suspect]
     Indication: ACUTE MYELOID LEUKAEMIA
     Dosage: 1010 MG, UNK
     Route: 042
     Dates: start: 20121231
  2. CYCLOPHOSPHAMIDE [Suspect]
     Dosage: 204 MG, UNK
     Route: 042
     Dates: start: 20130124
  3. CYTARABINE [Suspect]
     Indication: ACUTE LYMPHOCYTIC LEUKAEMIA
     Dosage: 76.5 MG, UNK
     Route: 042
     Dates: start: 20121206
  4. CYTARABINE [Suspect]
     Dosage: 74.3 MG, UNK
     Route: 042
     Dates: start: 20121212, end: 20121214
  5. CYTARABINE [Suspect]
     Dosage: 30 MG, UNK
     Route: 039
     Dates: start: 20130123
  6. CYTARABINE [Suspect]
     Dosage: 75.8 MG, UNK
     Dates: start: 20121219
  7. CYTARABINE [Suspect]
     Dosage: 75.8 MG, UNK
     Dates: start: 20121226
  8. METHYLPREDNISOLONE SODIUM SUCCINATE [Suspect]
     Indication: ACUTE LYMPHOCYTIC LEUKAEMIA
     Dosage: 11.2 MG, 1/8 HOUR
     Route: 042
     Dates: start: 20121115, end: 20121130
  9. METHOTREXATE SODIUM [Suspect]
     Indication: ACUTE MYELOID LEUKAEMIA
     Dosage: 12 MG, UNK
     Route: 042
     Dates: start: 20121219
  10. METHOTREXATE SODIUM [Suspect]
     Dosage: 12 MG, UNK
     Route: 039
     Dates: start: 20130123
  11. METHOTREXATE SODIUM [Suspect]
     Dosage: 5100 MG, UNK
     Route: 042
     Dates: start: 20130123
  12. DEXAMETHASONE SODIUM PHOSPHATE [Suspect]
     Indication: ACUTE MYELOID LEUKAEMIA
     Dosage: 6.8 MG, UNK
     Route: 042
     Dates: start: 20130123
  13. HYDROCORTISONE SODIUM SUCCINATE [Suspect]
     Indication: ACUTE LYMPHOCYTIC LEUKAEMIA
     Dosage: 12 MG, UNK
     Route: 042
     Dates: start: 20130123
  14. VINCRISTINE [Suspect]
     Indication: ACUTE LYMPHOCYTIC LEUKAEMIA
     Dosage: 1.58 MG, 4/1 WEEK
     Route: 042
     Dates: start: 20121108, end: 20121122
  15. VINCRISTINE [Suspect]
     Dosage: 1.5 MG, UNK
     Route: 042
     Dates: start: 20130124
  16. VINCRISTINE [Suspect]
     Dosage: UNK
     Dates: start: 20130128
  17. LEUCOVORIN [Suspect]
     Indication: ACUTE LYMPHOCYTIC LEUKAEMIA
     Dosage: 15.5 MG, 6 HOUR
     Route: 042
     Dates: start: 20130124
  18. DASATINIB [Suspect]
     Indication: ACUTE LYMPHOCYTIC LEUKAEMIA
     Dosage: 65 MG, 1 DAY
     Route: 048
     Dates: start: 20121112
  19. DASATINIB [Suspect]
     Dosage: 65 MG, 1 DAY
     Route: 048
     Dates: start: 20121114, end: 20121129
  20. DASATINIB [Suspect]
     Dosage: 65 MG, 1X/DAY
     Route: 048
     Dates: start: 20121206
  21. DASATINIB [Suspect]
     Dosage: 65 MG, 1X/DAY
     Route: 048
     Dates: start: 20130107
  22. DASATINIB [Suspect]
     Dosage: 65 MG, 1X/DAY
     Route: 048
     Dates: start: 20130123
  23. ACETAMINOPHEN [Concomitant]
     Dosage: UNK
     Dates: end: 20130123
  24. BISACODYL [Concomitant]
  25. HEPARIN FLUSH [Concomitant]
  26. HYDRALAZINE [Concomitant]
  27. LORAZEPAM [Concomitant]
  28. MORPHINE [Concomitant]
  29. ONDANSETRON [Concomitant]
  30. SENNA [Concomitant]
  31. MIRALAX [Concomitant]
     Dosage: UNK
  32. MIRALAX [Concomitant]
     Dosage: UNK
     Dates: end: 20130124
  33. LACTULOSE [Concomitant]
  34. DOCUSATE [Concomitant]
  35. CEFEPIME HYDROCHLORIDE [Concomitant]
  36. CALCIUM CARBONATE [Concomitant]
  37. SODIUM CHLORIDE [Concomitant]
  38. KETAMINE [Concomitant]
  39. MAALOX [Concomitant]
  40. MESNA [Concomitant]
  41. DEXTROSE [Concomitant]
     Dosage: UNK
  42. DEXTROSE [Concomitant]
     Dosage: DSW (DEXTROSE)
     Dates: end: 20130125
  43. BACTRIM [Concomitant]
  44. PEGFILGRASTIM [Concomitant]
     Dosage: UNK
     Dates: end: 20130129
  45. DIPHENHYDRAMINE [Concomitant]
     Dosage: UNK
     Dates: end: 20130129
  46. OXYCODONE [Concomitant]
  47. SODIUM BICARBONATE [Concomitant]
     Dosage: UNK
     Dates: end: 20130125
  48. POTASSIUM CHLORIDE [Concomitant]
     Dosage: UNK
     Dates: end: 20120125
  49. METOCLOPRAMIDE HYDROCHLORIDE [Concomitant]
     Dosage: UNK
     Dates: end: 20130129

REACTIONS (12)
  - Thrombocytopenia [Recovered/Resolved]
  - Anaemia [Recovered/Resolved]
  - Leukopenia [Recovered/Resolved]
  - Hypokalaemia [Not Recovered/Not Resolved]
  - Neutropenia [Recovered/Resolved]
  - Anaemia [Recovered/Resolved]
  - Anaemia [Recovered/Resolved]
  - Thrombocytopenia [Recovered/Resolved]
  - Anaemia [Not Recovered/Not Resolved]
  - Thrombocytopenia [Not Recovered/Not Resolved]
  - Leukopenia [Not Recovered/Not Resolved]
  - Neutropenia [Not Recovered/Not Resolved]
